FAERS Safety Report 15701253 (Version 7)
Quarter: 2021Q3

REPORT INFORMATION
  Report Type: Spontaneous
  Country: FR (occurrence: FR)
  Receive Date: 20181207
  Receipt Date: 20210702
  Transmission Date: 20211014
  Serious: Yes (Hospitalization, Other)
  Sender: FDA-Public Use
  Company Number: FR-PFIZER INC-2018501330

PATIENT

DRUGS (13)
  1. AZITHROMYCINE [Suspect]
     Active Substance: AZITHROMYCIN
     Indication: SUICIDE ATTEMPT
     Dosage: 1500 MG (1 TOTAL)
     Route: 048
     Dates: start: 20180701, end: 20180701
  2. SERESTA [Suspect]
     Active Substance: OXAZEPAM
     Indication: SUICIDE ATTEMPT
     Dosage: 310 MG (1 TOTAL)
     Route: 048
     Dates: start: 20180701, end: 20180701
  3. CEFPODOXIME [Suspect]
     Active Substance: CEFPODOXIME
     Dosage: 100 UNK (2000 MG TOTAL)
     Route: 048
  4. AUGMENTIN [Suspect]
     Active Substance: AMOXICILLIN\CLAVULANATE POTASSIUM
     Indication: SUICIDE ATTEMPT
     Dosage: 6 G, 1X/DAY
     Route: 048
     Dates: start: 20180701, end: 20180701
  5. CEFPODOXIME [Suspect]
     Active Substance: CEFPODOXIME
     Indication: SUICIDE ATTEMPT
     Dosage: 2000 MG (1 TOTAL)
     Route: 048
     Dates: start: 20180701, end: 20180701
  6. TRIMEBUTINE [Suspect]
     Active Substance: TRIMEBUTINE
     Indication: SUICIDE ATTEMPT
     Dosage: 14000 MG (1 TOTAL)
     Route: 048
     Dates: start: 20180701, end: 20180701
  7. ARESTAL [Suspect]
     Active Substance: LOPERAMIDE OXIDE
     Indication: SUICIDE ATTEMPT
     Dosage: 30 MG (1 TOTAL)
     Route: 048
     Dates: start: 20180701, end: 20180701
  8. INORIAL [Suspect]
     Active Substance: BILASTINE
     Indication: SUICIDE ATTEMPT
     Dosage: 120 MG (1 TOTAL)
     Route: 048
     Dates: start: 20180701, end: 20180701
  9. HEPATOUM [Suspect]
     Active Substance: DIETARY SUPPLEMENT\HERBALS
     Indication: SUICIDE ATTEMPT
     Dosage: UNK (UNSPECIFIED)
     Route: 048
     Dates: start: 20180701, end: 20180701
  10. PARACETAMOL [Suspect]
     Active Substance: ACETAMINOPHEN
     Indication: SUICIDE ATTEMPT
     Dosage: 79 G (1 TOTAL)
     Route: 048
     Dates: start: 20180701, end: 20180701
  11. ESCITALOPRAM [Suspect]
     Active Substance: ESCITALOPRAM OXALATE
     Indication: SUICIDE ATTEMPT
     Dosage: 140 MG, QD
     Route: 048
     Dates: start: 20180701, end: 20180701
  12. PREDNISOLONE. [Suspect]
     Active Substance: PREDNISOLONE
     Indication: SUICIDE ATTEMPT
     Dosage: 200 MG (1 TOTAL)
     Route: 048
     Dates: start: 20180701, end: 20180701
  13. BILASTINE [Suspect]
     Active Substance: BILASTINE
     Indication: SUICIDE ATTEMPT
     Dosage: 120 MG, UNK
     Route: 048
     Dates: start: 20180701, end: 20180701

REACTIONS (9)
  - Product use issue [Unknown]
  - Vomiting [Recovered/Resolved]
  - Somnolence [Recovered/Resolved]
  - Malaise [Recovered/Resolved]
  - Toxicity to various agents [Recovered/Resolved]
  - Suicide attempt [Unknown]
  - Intentional overdose [Unknown]
  - Product use in unapproved indication [Unknown]
  - Mydriasis [Recovered/Resolved]

NARRATIVE: CASE EVENT DATE: 20180701
